FAERS Safety Report 15428425 (Version 1)
Quarter: 2018Q3

REPORT INFORMATION
  Report Type: Report from Study
  Country: US (occurrence: US)
  Receive Date: 20180926
  Receipt Date: 20180926
  Transmission Date: 20181010
  Serious: Yes (Hospitalization)
  Sender: FDA-Public Use
  Company Number: US-TAKEDA-2018TUS027749

PATIENT
  Sex: Male

DRUGS (3)
  1. USTEKINUMAB [Concomitant]
     Active Substance: USTEKINUMAB
     Dosage: UNK
     Dates: start: 20180810
  2. TRIAMCINOLONE [Concomitant]
     Active Substance: TRIAMCINOLONE
     Dosage: UNK
  3. VEDOLIZUMAB [Suspect]
     Active Substance: VEDOLIZUMAB
     Indication: PRODUCT USED FOR UNKNOWN INDICATION
     Dosage: UNK
     Route: 042
     Dates: start: 20161020, end: 20180730

REACTIONS (14)
  - Dehydration [Unknown]
  - Colitis [Recovered/Resolved with Sequelae]
  - Haemorrhoids [Recovered/Resolved with Sequelae]
  - Abdominal pain lower [Recovered/Resolved with Sequelae]
  - Fatigue [Unknown]
  - Tooth abscess [Recovered/Resolved]
  - Protein deficiency [Unknown]
  - Clostridium difficile infection [Recovered/Resolved with Sequelae]
  - Urinary tract infection [Recovered/Resolved]
  - Diarrhoea [Recovered/Resolved with Sequelae]
  - Tachycardia [Unknown]
  - Proctalgia [Recovered/Resolved with Sequelae]
  - Transaminases increased [Recovered/Resolved]
  - Anaemia [Unknown]

NARRATIVE: CASE EVENT DATE: 2018
